FAERS Safety Report 7399346-7 (Version None)
Quarter: 2011Q2

REPORT INFORMATION
  Report Type: 
  Country: None (occurrence: None)
  Receive Date: 20110407
  Receipt Date: 20110406
  Transmission Date: 20111010
  Serious: Yes (Death)
  Sender: FDA-Public Use
  Company Number: PH-BAYER-2011-029901

PATIENT
  Sex: Male

DRUGS (6)
  1. PHYTONADIONE [Concomitant]
     Indication: PROTHROMBIN TIME PROLONGED
     Dosage: DAILY DOSE 30 MG
     Route: 042
     Dates: start: 20110328, end: 20110329
  2. NEXAVAR [Suspect]
     Indication: HEPATIC NEOPLASM MALIGNANT
  3. BARACLUDE [Concomitant]
     Indication: HEPATITIS B
     Dosage: DAILY DOSE .5 NOT APPL.
     Dates: start: 20101001, end: 20110326
  4. IMIPENEM [Concomitant]
     Indication: INFECTION
     Dosage: DAILY DOSE 1.5 G
     Route: 042
     Dates: start: 20110328, end: 20110329
  5. OMEPRAZOLE [Concomitant]
     Indication: PROPHYLAXIS AGAINST GASTROINTESTINAL ULCER
     Dosage: DAILY DOSE 40 MG
     Route: 042
     Dates: start: 20110328, end: 20110329
  6. SPIRONOLACTONE [Concomitant]
     Indication: OEDEMA
     Dosage: DAILY DOSE 50 MG
     Route: 048
     Dates: start: 20110328, end: 20110329

REACTIONS (1)
  - SEPSIS [None]
